FAERS Safety Report 7166190-5 (Version None)
Quarter: 2010Q4

REPORT INFORMATION
  Report Type: 
  Country: None (occurrence: None)
  Receive Date: 20101201
  Receipt Date: 20101122
  Transmission Date: 20110411
  Serious: Yes (Death)
  Sender: FDA-Public Use
  Company Number: UTC-002610

PATIENT
  Age: 58 Year
  Sex: Male

DRUGS (2)
  1. TYVASO [Suspect]
     Dosage: INHALATION
     Route: 055
     Dates: start: 20100113
  2. REVATIO [Concomitant]

REACTIONS (1)
  - DEATH [None]
